FAERS Safety Report 17066147 (Version 1)
Quarter: 2019Q4

REPORT INFORMATION
  Report Type: Spontaneous
  Country: US (occurrence: US)
  Receive Date: 20191122
  Receipt Date: 20191122
  Transmission Date: 20200122
  Serious: No
  Sender: FDA-Public Use
  Company Number: US-PERRIGO-19US011816

PATIENT
  Age: 67 Year
  Sex: Male
  Weight: 86.17 kg

DRUGS (4)
  1. POLYETHYLENE GLYCOL 3350. [Suspect]
     Active Substance: POLYETHYLENE GLYCOL 3350
     Dosage: 17 G, TID
     Route: 048
     Dates: start: 20190909, end: 20190926
  2. MORPHINE [Concomitant]
     Active Substance: MORPHINE
     Indication: PAIN
     Dosage: UNK
     Route: 065
     Dates: start: 201909
  3. POLYETHYLENE GLYCOL 3350. [Suspect]
     Active Substance: POLYETHYLENE GLYCOL 3350
     Indication: CONSTIPATION
     Dosage: 17 G, QD PRN
     Route: 048
     Dates: start: 201905, end: 20190908
  4. MORPHINE [Concomitant]
     Active Substance: MORPHINE
     Indication: DISCOMFORT

REACTIONS (4)
  - Incorrect product administration duration [Not Recovered/Not Resolved]
  - Overdose [Recovered/Resolved]
  - Abnormal faeces [Not Recovered/Not Resolved]
  - Inappropriate schedule of product administration [Recovered/Resolved]

NARRATIVE: CASE EVENT DATE: 20190909
